FAERS Safety Report 6683237-0 (Version None)
Quarter: 2010Q2

REPORT INFORMATION
  Report Type: 
  Country: None (occurrence: None)
  Receive Date: 20100415
  Receipt Date: 20100408
  Transmission Date: 20101027
  Serious: Yes (Hospitalization)
  Sender: FDA-Public Use
  Company Number: FR-JNJFOC-20100402032

PATIENT
  Age: 41 Year
  Sex: Male

DRUGS (6)
  1. TAVANIC [Suspect]
     Indication: BACTERAEMIA
     Route: 048
  2. TAVANIC [Suspect]
     Dosage: 1.5 DOSAGE DAILY
     Route: 048
  3. NEURONTIN [Suspect]
     Indication: SCIATICA
     Route: 048
  4. TRIFLUCAN [Suspect]
     Indication: CANDIDIASIS
     Route: 048
  5. CLINDAMYCIN HCL [Suspect]
     Indication: BACTERAEMIA
     Route: 048
  6. METHADONE HCL [Suspect]
     Indication: DRUG DEPENDENCE
     Route: 065

REACTIONS (3)
  - GENERAL PHYSICAL HEALTH DETERIORATION [None]
  - HEPATIC ENCEPHALOPATHY [None]
  - SKIN LESION [None]
